FAERS Safety Report 22950803 (Version 3)
Quarter: 2023Q4

REPORT INFORMATION
  Report Type: Spontaneous
  Country: US (occurrence: US)
  Receive Date: 20230916
  Receipt Date: 20231006
  Transmission Date: 20240109
  Serious: No
  Sender: FDA-Public Use
  Company Number: US-UNITED THERAPEUTICS-UNT-2023-025778

PATIENT
  Age: 45 Year
  Sex: Female

DRUGS (10)
  1. REMODULIN [Suspect]
     Active Substance: TREPROSTINIL
     Indication: Pulmonary arterial hypertension
     Dosage: UNK, CONTINUING
     Route: 041
     Dates: start: 2023
  2. REMODULIN [Suspect]
     Active Substance: TREPROSTINIL
     Indication: Pulmonary arterial hypertension
     Dosage: 0.01134 ?G/KG, (AT A PUMP RATE OF 20UL/HR.), CONTINUING
     Route: 058
     Dates: start: 202309
  3. REMODULIN [Suspect]
     Active Substance: TREPROSTINIL
     Dosage: 0.00363 ?G/KG, CONTINUING
     Route: 058
     Dates: start: 202309
  4. REMODULIN [Suspect]
     Active Substance: TREPROSTINIL
     Dosage: 0.01361 ?G/KG (AT A RATE OF 24 UL/HOUR), CONTINUING
     Route: 058
     Dates: start: 202309
  5. REMODULIN [Suspect]
     Active Substance: TREPROSTINIL
     Dosage: UNK, CONTINUING [AT A PUMP RATE OF 28 UL/HOUR]
     Route: 058
     Dates: start: 20230917
  6. REMODULIN [Suspect]
     Active Substance: TREPROSTINIL
     Dosage: UNK, CONTINUING
     Route: 058
     Dates: start: 202309
  7. PRILOCAINE [Suspect]
     Active Substance: PRILOCAINE
     Indication: Infusion site pain
     Dosage: UNK
     Route: 065
  8. LIDOCAINE [Suspect]
     Active Substance: LIDOCAINE
     Indication: Infusion site pain
     Dosage: UNK
     Route: 065
  9. UPTRAVI [Concomitant]
     Active Substance: SELEXIPAG
     Indication: Pulmonary arterial hypertension
     Dosage: 200 MCG, BID
     Route: 048
     Dates: start: 202304
  10. OPSUMIT [Concomitant]
     Active Substance: MACITENTAN
     Indication: Product used for unknown indication
     Route: 065

REACTIONS (8)
  - Headache [Not Recovered/Not Resolved]
  - Pain in jaw [Not Recovered/Not Resolved]
  - Infusion site pain [Unknown]
  - Therapy non-responder [Unknown]
  - Pain [Unknown]
  - Abdominal pain upper [Unknown]
  - Nausea [Unknown]
  - Insomnia [Unknown]

NARRATIVE: CASE EVENT DATE: 20230801
